FAERS Safety Report 11830147 (Version 2)
Quarter: 2015Q4

REPORT INFORMATION
  Report Type: Spontaneous
  Country: FI (occurrence: FI)
  Receive Date: 20151214
  Receipt Date: 20151224
  Transmission Date: 20160305
  Serious: Yes (Other)
  Sender: FDA-Public Use
  Company Number: FI-ROCHE-1676196

PATIENT
  Age: 79 Year
  Sex: Male

DRUGS (2)
  1. MABTHERA [Suspect]
     Active Substance: RITUXIMAB
     Indication: B-CELL LYMPHOMA
     Dosage: 4 CYCLES
     Route: 058
     Dates: start: 20140728, end: 20150611
  2. MABTHERA [Suspect]
     Active Substance: RITUXIMAB
     Indication: B-CELL LYMPHOMA
     Dosage: FIRST CYCLE OF MAINTENANCE THERAPY
     Route: 042
     Dates: start: 20131125

REACTIONS (6)
  - Neuropathy peripheral [Recovered/Resolved]
  - Infection [Recovered/Resolved]
  - General physical health deterioration [Recovered/Resolved]
  - Pneumonia [Recovered/Resolved]
  - Muscle atrophy [Recovered/Resolved]
  - Cytomegalovirus chorioretinitis [Not Recovered/Not Resolved]

NARRATIVE: CASE EVENT DATE: 20140116
